FAERS Safety Report 24395810 (Version 1)
Quarter: 2024Q4

REPORT INFORMATION
  Report Type: Spontaneous
  Country: US (occurrence: US)
  Receive Date: 20241004
  Receipt Date: 20241004
  Transmission Date: 20250115
  Serious: No
  Sender: SANDOZ
  Company Number: US-SANDOZ-SDZ2024US083362

PATIENT
  Age: 59 Year
  Sex: Female

DRUGS (26)
  1. LEVOFLOXACIN [Suspect]
     Active Substance: LEVOFLOXACIN
     Indication: Product used for unknown indication
     Route: 065
  2. PENICILLIN G POTASSIUM [Suspect]
     Active Substance: PENICILLIN G POTASSIUM
     Indication: Product used for unknown indication
     Dosage: UNK
     Route: 065
  3. RIFAMPIN [Suspect]
     Active Substance: RIFAMPIN
     Indication: Product used for unknown indication
     Dosage: 600 MG 3 TIMES A  WEEK
     Route: 065
  4. VALACYCLOVIR HYDROCHLORIDE [Suspect]
     Active Substance: VALACYCLOVIR HYDROCHLORIDE
     Indication: Product used for unknown indication
     Dosage: UNK
     Route: 065
  5. ALBUTEROL\IPRATROPIUM [Concomitant]
     Active Substance: ALBUTEROL\IPRATROPIUM
     Indication: Product used for unknown indication
     Dosage: 2.5 MG-0.5 MG/3 ML
     Route: 065
  6. ATOGEPANT [Concomitant]
     Active Substance: ATOGEPANT
     Indication: Product used for unknown indication
     Dosage: 10 MG (QULIPTA 10 MG ORAL TABLET)
     Route: 048
  7. ATOGEPANT [Concomitant]
     Active Substance: ATOGEPANT
     Dosage: 30 MG, QD (QULIPTA 30 MG ORAL TABLET), 30 MG= 1 TAB(S), ORAL, DAILY
     Route: 048
  8. AZITHROMYCIN [Concomitant]
     Active Substance: AZITHROMYCIN
     Indication: Product used for unknown indication
     Dosage: 500 MG 500 MG= 1 TAB(S), ORAL,  3X/WK, 1 REFILLS
     Route: 048
  9. BIOTIN [Concomitant]
     Active Substance: BIOTIN
     Indication: Product used for unknown indication
     Dosage: UNK, QD
     Route: 048
  10. CYCLOBENZAPRINE [Concomitant]
     Active Substance: CYCLOBENZAPRINE
     Indication: Product used for unknown indication
     Dosage: 5 MG
     Route: 048
  11. DEXAMETHASONE [Concomitant]
     Active Substance: DEXAMETHASONE
     Indication: Product used for unknown indication
     Dosage: 4 MG
     Route: 048
  12. ETHAMBUTOL [Concomitant]
     Active Substance: ETHAMBUTOL HYDROCHLORIDE
     Indication: Product used for unknown indication
     Dosage: 400 MG
     Route: 048
  13. IPRATROPIUM [Concomitant]
     Active Substance: IPRATROPIUM
     Indication: Product used for unknown indication
     Dosage: 42 MCG/INH
     Route: 045
  14. LETROZOLE [Concomitant]
     Active Substance: LETROZOLE
     Indication: Product used for unknown indication
     Dosage: 2.5 MG
     Route: 048
  15. MAGNESIUM OXIDE [Concomitant]
     Active Substance: MAGNESIUM OXIDE
     Indication: Product used for unknown indication
     Route: 048
  16. NADOLOL [Concomitant]
     Active Substance: NADOLOL
     Indication: Product used for unknown indication
     Dosage: 40 MG
     Route: 048
  17. NIRMATRELVIR\RITONAVIR [Concomitant]
     Active Substance: NIRMATRELVIR\RITONAVIR
     Indication: Product used for unknown indication
     Dosage: 3 DF, BID (PAXLOVID 150 MG-100 MG (300 MG-100 MG DOSE) ORAL TABLET), 3 TAB(S), ORAL, BID
     Route: 048
  18. RIFABUTIN [Concomitant]
     Active Substance: RIFABUTIN
     Indication: Product used for unknown indication
     Dosage: 150 MG
     Route: 048
  19. RIMEGEPANT [Concomitant]
     Active Substance: RIMEGEPANT
     Indication: Product used for unknown indication
     Dosage: 75 MG (NURTEC ODT)
     Route: 048
  20. RIZATRIPTAN [Concomitant]
     Active Substance: RIZATRIPTAN
     Indication: Product used for unknown indication
     Dosage: 10 MG
     Route: 048
  21. ROPINIROLE [Concomitant]
     Active Substance: ROPINIROLE
     Indication: Product used for unknown indication
     Dosage: 0.25 MG
     Route: 048
  22. ROPINIROLE [Concomitant]
     Active Substance: ROPINIROLE
     Dosage: 0.5 MG, TID (0.5 MG= 1 TAB(S), ORAL, TID)
     Route: 048
  23. SODIUM CHLORIDE [Concomitant]
     Active Substance: SODIUM CHLORIDE
     Indication: Product used for unknown indication
     Dosage: (HYPER-SAL 3.5%)
     Route: 065
  24. TIZANIDINE [Concomitant]
     Active Substance: TIZANIDINE
     Indication: Product used for unknown indication
     Dosage: 6 MG, TID (ZANAFLEX 6 MG ORAL CAPSULE),  6 MG= 1 CAP(S), ORAL, TID
     Route: 048
  25. TOPIRAMATE [Concomitant]
     Active Substance: TOPIRAMATE
     Indication: Product used for unknown indication
     Dosage: 100 MG
     Route: 048
  26. TRIAMCINOLONE [Concomitant]
     Active Substance: TRIAMCINOLONE
     Indication: Product used for unknown indication
     Route: 061

REACTIONS (2)
  - Dizziness [Unknown]
  - Hypersensitivity [Unknown]
